FAERS Safety Report 7750769-3 (Version None)
Quarter: 2011Q3

REPORT INFORMATION
  Report Type: 
  Country: None (occurrence: None)
  Receive Date: 20110914
  Receipt Date: 20110907
  Transmission Date: 20111222
  Serious: Yes (Hospitalization)
  Sender: FDA-Public Use
  Company Number: US-BRISTOL-MYERS SQUIBB COMPANY-16037996

PATIENT
  Age: 34 Year
  Sex: Female
  Weight: 63 kg

DRUGS (2)
  1. COUMADIN [Suspect]
     Indication: CEREBROVASCULAR ACCIDENT
     Dosage: CURRENT DOSE 5 TO 7.5 MG ONCE DAILY.INTERRUPTED IN DEC2010 AND RESTARTED
     Dates: start: 20090101
  2. LOVENOX [Suspect]

REACTIONS (6)
  - MYOCARDIAL INFARCTION [None]
  - WEIGHT DECREASED [None]
  - INTERNATIONAL NORMALISED RATIO FLUCTUATION [None]
  - NASOPHARYNGITIS [None]
  - HAEMOGLOBIN DECREASED [None]
  - HAEMATOCRIT DECREASED [None]
